FAERS Safety Report 15250616 (Version 2)
Quarter: 2018Q3

REPORT INFORMATION
  Report Type: Spontaneous
  Country: US (occurrence: US)
  Receive Date: 20180807
  Receipt Date: 20180816
  Transmission Date: 20181010
  Serious: Yes (Hospitalization)
  Sender: FDA-Public Use
  Company Number: US-FRESENIUS MEDICAL CARE RENAL THERAPIES GROUP-FMC-1808-001393

PATIENT
  Age: 26 Year
  Sex: Male
  Weight: 55.5 kg

DRUGS (17)
  1. VELPHORO [Concomitant]
     Active Substance: FERRIC OXYHYDROXIDE
  2. LANTUS [Concomitant]
     Active Substance: INSULIN GLARGINE
  3. PRAVASTATIN. [Concomitant]
     Active Substance: PRAVASTATIN
  4. ZIAGEN [Concomitant]
     Active Substance: ABACAVIR SULFATE
  5. EPIVIR [Concomitant]
     Active Substance: LAMIVUDINE
  6. DELFLEX WITH DEXTROSE 2.5% LOW MAGNESIUM LOW CALCIUM [Suspect]
     Active Substance: CALCIUM CHLORIDE\DEXTROSE\MAGNESIUM CHLORIDE\SODIUM CHLORIDE\SODIUM LACTATE
     Indication: END STAGE RENAL DISEASE
     Route: 033
  7. CARVEDILOL. [Concomitant]
     Active Substance: CARVEDILOL
  8. RENVELA [Concomitant]
     Active Substance: SEVELAMER CARBONATE
  9. AMLODIPINE [Concomitant]
     Active Substance: AMLODIPINE BESYLATE
  10. COREG [Concomitant]
     Active Substance: CARVEDILOL
  11. ABACAVIR. [Concomitant]
     Active Substance: ABACAVIR
  12. LAMIVUDINE. [Concomitant]
     Active Substance: LAMIVUDINE
  13. HUMALOG [Concomitant]
     Active Substance: INSULIN LISPRO
  14. LANTUS [Concomitant]
     Active Substance: INSULIN GLARGINE
  15. DOLUTEGRAVIR [Concomitant]
     Active Substance: DOLUTEGRAVIR
  16. LASIX [Concomitant]
     Active Substance: FUROSEMIDE
  17. NEURONTIN [Concomitant]
     Active Substance: GABAPENTIN

REACTIONS (1)
  - Fluid overload [Recovered/Resolved]

NARRATIVE: CASE EVENT DATE: 20180727
